FAERS Safety Report 4701478-6 (Version None)
Quarter: 2005Q2

REPORT INFORMATION
  Report Type: 
  Country: None (occurrence: None)
  Receive Date: 20050628
  Receipt Date: 20050620
  Transmission Date: 20051028
  Serious: Yes (Hospitalization)
  Sender: FDA-Public Use
  Company Number: GB-ROCHE-408327

PATIENT
  Age: 67 Year
  Sex: Male
  Weight: 72.2 kg

DRUGS (4)
  1. XELODA [Suspect]
     Dosage: IT IS REPORTED THAT CAPECITABINE WAS TAKEN ON 20 JANUARY, 2005, 11 FEBRUARY, 2005 AND 21 FEBRUARY, +
     Route: 048
     Dates: start: 20050120
  2. OXALIPLATIN [Concomitant]
     Dosage: IT IS REPORTED THAT OXALIPLATIN WAS GIVEN ON 20 JANUARY, 2005, AND 11 FEBRUARY, 2005.
     Route: 042
     Dates: start: 20050120
  3. DIAZEPAM [Concomitant]
     Indication: ANXIETY
     Route: 048
  4. CITALOPRAM [Concomitant]
     Route: 048

REACTIONS (4)
  - ABDOMINAL DISTENSION [None]
  - DIARRHOEA [None]
  - INTESTINAL PERFORATION [None]
  - PAIN [None]
